FAERS Safety Report 13273602 (Version 1)
Quarter: 2017Q1

REPORT INFORMATION
  Report Type: Spontaneous
  Country: BR (occurrence: BR)
  Receive Date: 20170227
  Receipt Date: 20170227
  Transmission Date: 20170428
  Serious: Yes (Other)
  Sender: FDA-Public Use
  Company Number: BR-TORRENT-00003889

PATIENT
  Age: 56 Year
  Sex: Female

DRUGS (1)
  1. VENLIFT OD [Suspect]
     Active Substance: VENLAFAXINE HYDROCHLORIDE

REACTIONS (3)
  - Hypersomnia [Unknown]
  - Suicide attempt [Unknown]
  - Overdose [Unknown]
